FAERS Safety Report 4511556-2 (Version None)
Quarter: 2004Q4

REPORT INFORMATION
  Report Type: 
  Country: None (occurrence: None)
  Receive Date: 20041129
  Receipt Date: 20040923
  Transmission Date: 20050328
  Serious: No
  Sender: FDA-Public Use
  Company Number: US-BRISTOL-MYERS SQUIBB COMPANY-12712253

PATIENT
  Sex: Male

DRUGS (2)
  1. ABILIFY [Suspect]
     Dosage: INITIATED AT 15 MG/DAY.
     Route: 048
  2. RISPERDAL [Concomitant]
     Dosage: INITIALLY ON 10 MG/DAY.

REACTIONS (1)
  - LIBIDO INCREASED [None]
